FAERS Safety Report 6821812-0 (Version None)
Quarter: 2010Q3

REPORT INFORMATION
  Report Type: 
  Country: None (occurrence: None)
  Receive Date: 20100708
  Receipt Date: 20100628
  Transmission Date: 20110219
  Serious: Yes (Hospitalization, Other)
  Sender: FDA-Public Use
  Company Number: US-BIOGENIDEC-2010BI013446

PATIENT
  Age: 46 Year
  Sex: Female
  Weight: 87 kg

DRUGS (3)
  1. TYSABRI [Suspect]
     Indication: MULTIPLE SCLEROSIS
     Route: 042
     Dates: start: 20090612, end: 20100223
  2. BLOOD PRESSURE MEDICATION (NOS) [Concomitant]
     Indication: CEREBROVASCULAR ACCIDENT
  3. HEART MEDICATION (NOS) [Concomitant]
     Indication: MYOCARDIAL INFARCTION

REACTIONS (7)
  - ARTHROPATHY [None]
  - ASTHENIA [None]
  - DYSURIA [None]
  - MASS [None]
  - MIGRAINE [None]
  - OSTEOMYELITIS [None]
  - URINARY RETENTION [None]
